FAERS Safety Report 14787048 (Version 2)
Quarter: 2018Q2

REPORT INFORMATION
  Report Type: Spontaneous
  Country: US (occurrence: US)
  Receive Date: 20180420
  Receipt Date: 20180422
  Transmission Date: 20180711
  Serious: Yes (Hospitalization, Other)
  Sender: FDA-Public Use
  Company Number: US-APOTEX-2018AP011133

PATIENT
  Age: 22 Year
  Sex: Female

DRUGS (3)
  1. METFORMIN [Suspect]
     Active Substance: METFORMIN HYDROCHLORIDE
     Indication: PRODUCT USED FOR UNKNOWN INDICATION
     Dosage: UNK
     Route: 065
  2. MELOXICAM. [Suspect]
     Active Substance: MELOXICAM
     Indication: PRODUCT USED FOR UNKNOWN INDICATION
     Dosage: UNK
     Route: 065
  3. IBUPROFEN. [Suspect]
     Active Substance: IBUPROFEN
     Indication: PRODUCT USED FOR UNKNOWN INDICATION
     Dosage: UNK
     Route: 065

REACTIONS (22)
  - Flushing [Unknown]
  - Hypoglycaemia [Unknown]
  - Hypotension [Unknown]
  - Hypothermia [Unknown]
  - Skin warm [Unknown]
  - Tachypnoea [Unknown]
  - Unresponsive to stimuli [Unknown]
  - Hypertension [Unknown]
  - Lactic acidosis [Recovered/Resolved]
  - Mental status changes [Unknown]
  - Electrocardiogram QRS complex prolonged [Unknown]
  - Urine output increased [Unknown]
  - Delirium [Recovered/Resolved]
  - Anhidrosis [Unknown]
  - Gastrointestinal sounds abnormal [Unknown]
  - Nausea [Unknown]
  - Mydriasis [Unknown]
  - Tachycardia [Unknown]
  - Lethargy [Unknown]
  - Intentional overdose [Unknown]
  - Electrocardiogram QT prolonged [Unknown]
  - Metabolic acidosis [Recovered/Resolved]
